FAERS Safety Report 20851114 (Version 2)
Quarter: 2022Q3

REPORT INFORMATION
  Report Type: Spontaneous
  Country: GR (occurrence: GR)
  Receive Date: 20220519
  Receipt Date: 20220811
  Transmission Date: 20221027
  Serious: Yes (Other)
  Sender: FDA-Public Use
  Company Number: GR-PFM-2022-03494

PATIENT
  Age: 76 Year
  Sex: Male

DRUGS (9)
  1. ZOLOFT [Interacting]
     Active Substance: SERTRALINE HYDROCHLORIDE
     Indication: Anxiety disorder
     Dosage: UNK, DAILY,HALF TABLET AT NIGHT
     Dates: start: 20220427
  2. DOMPERIDONE [Interacting]
     Active Substance: DOMPERIDONE
     Indication: Nausea
     Dosage: 10 MG, UNK
     Route: 048
     Dates: start: 20220415
  3. DOMPERIDONE [Interacting]
     Active Substance: DOMPERIDONE
     Dosage: 1 DF, 2X/DAY,(ONE TABLET AT NOON AND ONE TABLET AT NIGHT)
     Route: 048
     Dates: start: 20220427
  4. DOMPERIDONE [Interacting]
     Active Substance: DOMPERIDONE
     Dosage: 1 DF, 1X/DAY,((1 DF, ONE TABLET IN THE MORNING AT NINE O^CLOCK))
     Route: 048
     Dates: start: 20220428
  5. MOLLERI KALAMAKSA. [Concomitant]
     Indication: Blood triglycerides increased
     Dosage: UNK
  6. CIALIS [Concomitant]
     Active Substance: TADALAFIL
     Indication: Benign prostatic hyperplasia
     Dosage: 5 MG, QD (1/DAY)
  7. SIMVASTATIN [Concomitant]
     Active Substance: SIMVASTATIN
     Indication: Blood cholesterol increased
     Dosage: 20 MG, QD (1/DAY)
  8. CYMBALTA [Concomitant]
     Active Substance: DULOXETINE HYDROCHLORIDE
     Indication: Product used for unknown indication
     Dosage: UNK
  9. CITALOPRAM [Concomitant]
     Active Substance: CITALOPRAM HYDROBROMIDE
     Indication: Anxiety disorder
     Dosage: 1 ML, QD (1/DAY)

REACTIONS (6)
  - Intentional product misuse [Unknown]
  - Heart rate increased [Recovered/Resolved]
  - Contraindicated product administered [Unknown]
  - Contraindicated product administered [Unknown]
  - Drug interaction [Unknown]
  - Nausea [Unknown]

NARRATIVE: CASE EVENT DATE: 20220415
